FAERS Safety Report 11233641 (Version 1)
Quarter: 2015Q2

REPORT INFORMATION
  Report Type: Spontaneous
  Country: US (occurrence: None)
  Receive Date: 20150630
  Receipt Date: 20150630
  Transmission Date: 20150821
  Serious: Yes (Death)
  Sender: FDA-Public Use
  Company Number: INS201506-000261

PATIENT
  Age: 61 Year
  Sex: Male
  Weight: 82.56 kg

DRUGS (1)
  1. SUBSYS [Suspect]
     Active Substance: FENTANYL
     Indication: COLON CANCER

REACTIONS (1)
  - Death [None]

NARRATIVE: CASE EVENT DATE: 20150526
